FAERS Safety Report 10157806 (Version 1)
Quarter: 2014Q2

REPORT INFORMATION
  Report Type: Spontaneous
  Country: BR (occurrence: BR)
  Receive Date: 20140507
  Receipt Date: 20140507
  Transmission Date: 20141212
  Serious: Yes (Hospitalization)
  Sender: FDA-Public Use
  Company Number: BR-DSJP-DSU-2014-106568

PATIENT
  Sex: 0

DRUGS (6)
  1. OLMETEC ANLO [Suspect]
     Indication: BLOOD PRESSURE ABNORMAL
     Dosage: 5/20 MG, QD
     Route: 048
     Dates: start: 20120305
  2. NORVASC [Suspect]
     Indication: BLOOD PRESSURE ABNORMAL
     Dosage: 5 MG, QD
     Dates: start: 20100517
  3. FRONTAL [Suspect]
     Indication: SLEEP DISORDER
     Dosage: 1 MG, QD
     Route: 048
     Dates: start: 20100517
  4. LIPITOR [Suspect]
     Indication: PRODUCT USED FOR UNKNOWN INDICATION
     Dosage: 20 MG, QD
     Route: 048
     Dates: start: 20110910
  5. CARDILOL                           /00030002/ [Concomitant]
     Indication: PRODUCT USED FOR UNKNOWN INDICATION
     Dosage: 2 DF, BID
     Dates: start: 2004
  6. CLOPIDOGREL BISULFATE [Concomitant]
     Indication: ANTICOAGULANT THERAPY
     Dosage: 1 DF, QD
     Route: 048

REACTIONS (1)
  - Lymphadenopathy [Unknown]
